FAERS Safety Report 21220832 (Version 1)
Quarter: 2022Q3

REPORT INFORMATION
  Report Type: Report from Study
  Country: GR (occurrence: GR)
  Receive Date: 20220817
  Receipt Date: 20220817
  Transmission Date: 20221027
  Serious: Yes (Hospitalization)
  Sender: FDA-Public Use
  Company Number: GR-ROCHE-2460598

PATIENT
  Age: 71 Year
  Sex: Female
  Weight: 98 kg

DRUGS (32)
  1. GEMCITABINE [Suspect]
     Active Substance: GEMCITABINE
     Indication: HER2 positive breast cancer
     Dosage: DURATION: 29 DAYS, UNIT DOSE: 1500 MG
     Dates: start: 20190724, end: 20190821
  2. GEMCITABINE [Suspect]
     Active Substance: GEMCITABINE
     Dosage: MOST RECENT DOSE PRIOR TO THE EVENT: 10/MAY/2019, DURATION: 55 DAYS, UNIT DOSE: 2000 MG
     Dates: start: 20190510, end: 20190703
  3. DOCETAXEL [Suspect]
     Active Substance: DOCETAXEL
     Indication: HER2 positive breast cancer
     Dosage: FREQUENCY TIME : 3 WEEKS, UNIT DOSE: 75 MG/KG, THERAPY END DATE: NASK
     Dates: start: 20161018
  4. DOCETAXEL [Suspect]
     Active Substance: DOCETAXEL
     Dosage: MOST RECENT DOSE PRIOR TO THE EVENT: 17/NOV/2016, FREQUENCY TIME : 3 WEEKS, UNIT DOSE: 160 MG, THERA
     Dates: start: 20161025
  5. CAPECITABINE [Suspect]
     Active Substance: CAPECITABINE
     Indication: HER2 positive breast cancer
     Dosage: MOST RECENT DOSE PRIOR TO THE EVENT ON 22/OCT/2018, FREQUENCY TIME : 0.5 DAY, DURATION: 22 DAYS, UNI
     Dates: start: 20180618, end: 20180709
  6. PERTUZUMAB [Suspect]
     Active Substance: PERTUZUMAB
     Indication: HER2 positive breast cancer
     Dosage: FREQUENCY TIME ; 3 WEEKS, UNIT DOSE: 840 MG/KG, THERAPY END DATE: NASK
     Dates: start: 20161018
  7. PERTUZUMAB [Suspect]
     Active Substance: PERTUZUMAB
     Dosage: MOST RECENT DOSE PRIOR TO THE EVENT: 12/DEC/2016, FREQUENCY TIME ; 3 WEEKS, DURATION: 1 DAY, UNIT DO
     Dates: start: 20161117, end: 20161117
  8. TRASTUZUMAB [Suspect]
     Active Substance: TRASTUZUMAB
     Indication: HER2 positive breast cancer
     Dosage: MOST RECENT DOSE PRIOR TO THE EVENT: 17/NOV/2016 AND 10/MAY/2019, FREQUENCY TIME : 3 WEEKS, DURATION
     Dates: start: 20161025, end: 20161025
  9. TRASTUZUMAB [Suspect]
     Active Substance: TRASTUZUMAB
     Dosage: FREQUENCY TIME : 3 WEEKS, UNIT DOSE: 8 MG/KG, THERAPY END DATE: NASK
     Dates: start: 20161018
  10. LAPATINIB [Suspect]
     Active Substance: LAPATINIB
     Indication: HER2 positive breast cancer
     Dosage: MOST RECENT DOSE PRIOR TO THE EVENT: 14/NOV/2018, FREQUENCY TIME : 1 DAY, DURATION: 22 DAYS, UNIT DO
     Dates: start: 20180618, end: 20180709
  11. LAPATINIB [Suspect]
     Active Substance: LAPATINIB
     Dosage: FREQUENCY TIME : 1 DAY, UNIT DOSE: 1250 MG, THERAPY END DATE: NASK
     Dates: start: 20180611
  12. LAPATINIB [Suspect]
     Active Substance: LAPATINIB
     Dosage: FREQUENCY TIME : 1 DAY, DURATION: 114 DAYS, UNIT DOSE: 1000 MG
     Dates: start: 20180723, end: 20181113
  13. ADO-TRASTUZUMAB EMTANSINE [Suspect]
     Active Substance: ADO-TRASTUZUMAB EMTANSINE
     Indication: HER2 positive breast cancer
     Dosage: FREQUENCY TIME : 3 WEEKS, DURATION: 283 DAYS, UNIT DOSE: 270 MG
     Dates: start: 20170726, end: 20180504
  14. VANCOMYCIN HYDROCHLORIDE [Concomitant]
     Active Substance: VANCOMYCIN HYDROCHLORIDE
     Indication: Product used for unknown indication
     Dosage: DURATION ; 4 DAYS
     Dates: start: 20190706, end: 20190709
  15. AMOXICILLIN AND CLAVULANATE POTASSIUM [Concomitant]
     Active Substance: AMOXICILLIN\CLAVULANATE POTASSIUM
     Indication: Device related infection
     Dosage: DURATION: 5 DAYS
     Dates: start: 20170517, end: 20170521
  16. ACETAMINOPHEN\CODEINE PHOSPHATE [Concomitant]
     Active Substance: ACETAMINOPHEN\CODEINE PHOSPHATE
     Indication: Product used for unknown indication
  17. CIPROFLOXACIN [Concomitant]
     Active Substance: CIPROFLOXACIN
     Indication: Pyrexia
     Dosage: DURATION: 8 DAYS
     Dates: start: 20190503, end: 20190510
  18. CIPROFLOXACIN [Concomitant]
     Active Substance: CIPROFLOXACIN
     Dosage: DURATION: 5 DAYS
     Dates: start: 20190705, end: 20190709
  19. LOSEC [Concomitant]
     Active Substance: OMEPRAZOLE
     Indication: Product used for unknown indication
     Dosage: DURATION: 7 DAYS
     Dates: start: 20190703, end: 20190709
  20. BILARGEN [Concomitant]
     Indication: Rash
     Dosage: DURATION: 25 DAYS
     Dates: start: 20180601, end: 20180625
  21. ZOMETA [Concomitant]
     Active Substance: ZOLEDRONIC ACID
     Indication: Product used for unknown indication
     Dates: start: 20161018
  22. ZOMETA [Concomitant]
     Active Substance: ZOLEDRONIC ACID
     Dosage: DURATION: 961 DAYS
     Dates: start: 20161018, end: 20190605
  23. FENTANYL [Concomitant]
     Active Substance: FENTANYL
     Indication: Product used for unknown indication
     Dosage: ONGOING = CHECKED
     Dates: start: 20161015
  24. CALCIUM CARBONATE\CHOLECALCIFEROL [Concomitant]
     Active Substance: CALCIUM CARBONATE\CHOLECALCIFEROL
     Indication: Product used for unknown indication
     Dosage: DURATION: 535 DAYS
     Dates: start: 20171218, end: 20190605
  25. GRANULOKINE [Concomitant]
     Active Substance: FILGRASTIM
     Indication: Febrile neutropenia
     Dosage: DURATION: 3 DAYS
     Dates: start: 20161102, end: 20161104
  26. LEVOTHYROXINE [Concomitant]
     Active Substance: LEVOTHYROXINE
     Indication: Product used for unknown indication
     Dosage: ONGOING = CHECKED
     Dates: start: 20090615
  27. LEVOTHYROXINE [Concomitant]
     Active Substance: LEVOTHYROXINE
     Dosage: ONGOING = CHECKED
     Dates: start: 20090615
  28. PRIMPERAN [Concomitant]
     Active Substance: METOCLOPRAMIDE HYDROCHLORIDE
     Indication: Abdominal pain
     Dosage: DURATION: 3 DAYS
     Dates: start: 20161102, end: 20161104
  29. PRIMPERAN [Concomitant]
     Active Substance: METOCLOPRAMIDE HYDROCHLORIDE
     Dosage: DURATION: 5 DAYS
     Dates: start: 20161106, end: 20161110
  30. LAMISIL [Concomitant]
     Active Substance: TERBINAFINE HYDROCHLORIDE
     Indication: Onychomycosis
     Dosage: DURATION; 44 DAYS
     Dates: start: 20170404, end: 20170517
  31. STABILANOL [Concomitant]
     Indication: Onychomycosis
     Dosage: DURATION: 20 DAYS
     Dates: start: 20171218, end: 20180106
  32. STABILANOL [Concomitant]
     Dosage: DURATION: 20 DAYS
     Dates: start: 20180205, end: 20180224

REACTIONS (3)
  - Device related infection [Recovered/Resolved]
  - Peripheral sensory neuropathy [Recovered/Resolved]
  - Platelet count decreased [Recovered/Resolved]

NARRATIVE: CASE EVENT DATE: 20180115
